FAERS Safety Report 7861343-2 (Version None)
Quarter: 2011Q4

REPORT INFORMATION
  Report Type: 
  Country: None (occurrence: None)
  Receive Date: 20111027
  Receipt Date: 20111021
  Transmission Date: 20120403
  Serious: Yes (Other)
  Sender: FDA-Public Use
  Company Number: BR-ABBOTT-11P-020-0867926-00

PATIENT
  Sex: Male
  Weight: 70 kg

DRUGS (2)
  1. MELOXICAM [Concomitant]
     Indication: PAIN
     Route: 048
  2. HUMIRA [Suspect]
     Indication: ANKYLOSING SPONDYLITIS
     Route: 058
     Dates: start: 20100819, end: 20110501

REACTIONS (3)
  - INFLUENZA [None]
  - ABDOMINAL MASS [None]
  - HIATUS HERNIA [None]
